FAERS Safety Report 5920897-3 (Version None)
Quarter: 2008Q4

REPORT INFORMATION
  Report Type: 
  Country: None (occurrence: None)
  Receive Date: 20081015
  Receipt Date: 20081015
  Transmission Date: 20090506
  Serious: Yes (Other)
  Sender: FDA-Public Use
  Company Number: None

PATIENT
  Age: 31 Year
  Sex: Female
  Weight: 63.5036 kg

DRUGS (1)
  1. SOLODYN [Suspect]
     Indication: ACNE
     Dosage: 135 MG QD PO
     Route: 048
     Dates: start: 20080720, end: 20081014

REACTIONS (3)
  - CONSTIPATION [None]
  - HAEMATOCHEZIA [None]
  - PROCTALGIA [None]
